FAERS Safety Report 12868582 (Version 1)
Quarter: 2016Q4

REPORT INFORMATION
  Report Type: Spontaneous
  Country: US (occurrence: US)
  Receive Date: 20161019
  Receipt Date: 20161019
  Transmission Date: 20170207
  Serious: Yes (Hospitalization)
  Sender: FDA-Public Use
  Company Number: None

PATIENT
  Age: 18 Year
  Sex: Male

DRUGS (5)
  1. VITAMAX [Concomitant]
  2. PULMOZYME [Suspect]
     Active Substance: DORNASE ALFA
     Indication: CYSTIC FIBROSIS
     Dosage: NEB
     Dates: start: 20140227
  3. FLOVENT [Concomitant]
     Active Substance: FLUTICASONE PROPIONATE
  4. OMEPRAZOLE. [Concomitant]
     Active Substance: OMEPRAZOLE
  5. SOD CHL [Concomitant]

REACTIONS (2)
  - Nasopharyngitis [None]
  - Cough [None]
